FAERS Safety Report 6223262-7 (Version None)
Quarter: 2009Q2

REPORT INFORMATION
  Report Type: 
  Country: None (occurrence: None)
  Receive Date: 20090611
  Receipt Date: 20090601
  Transmission Date: 20091009
  Serious: Yes (Other)
  Sender: FDA-Public Use
  Company Number: US-ELI_LILLY_AND_COMPANY-US200906000240

PATIENT
  Sex: Female

DRUGS (15)
  1. HUMULIN N [Suspect]
  2. HUMALOG [Suspect]
  3. LIPITOR [Concomitant]
     Dosage: 40 MG, UNK
  4. LEVOTHYROXINE [Concomitant]
     Dosage: 0.075 MG, UNK
  5. ASPIRIN [Concomitant]
     Dosage: 81 MG, UNK
  6. RANITIDINE [Concomitant]
     Dosage: 150 MG, UNK
  7. RAMIPRIL [Concomitant]
     Dosage: 1.25 MG, DAILY (1/D)
  8. FLUOXETINE [Concomitant]
     Dosage: UNK, DAILY (1/D)
  9. AMITRIPTLINE HYDROCHLORIDE TAB [Concomitant]
     Dosage: 30 MG, UNK
  10. DIAZEPAM [Concomitant]
     Dosage: 0.25 MG, UNK
  11. CALCIUM + VITAMIN D [Concomitant]
     Dosage: 600 MG, UNK
  12. PANTOPRAZOLE SODIUM [Concomitant]
     Dosage: 40 MG, UNK
  13. ESTER-C [Concomitant]
     Dosage: 500 MG, UNK
  14. VITAMIN B COMPLEX CAP [Concomitant]
     Dosage: 250 MG, UNK
  15. FOSAMAX [Concomitant]
     Dosage: 70 MG, WEEKLY (1/W)

REACTIONS (3)
  - BLOOD GLUCOSE INCREASED [None]
  - DEAFNESS [None]
  - THYROID DISORDER [None]
